FAERS Safety Report 7403512-1 (Version None)
Quarter: 2011Q2

REPORT INFORMATION
  Report Type: 
  Country: None (occurrence: None)
  Receive Date: 20110408
  Receipt Date: 20110401
  Transmission Date: 20111010
  Serious: Yes (Other)
  Sender: FDA-Public Use
  Company Number: US-MERCK-96082346

PATIENT
  Age: 73 Year
  Sex: Female

DRUGS (2)
  1. CALCIUM [Concomitant]
     Route: 065
  2. FOSAMAX [Suspect]
     Route: 048
     Dates: start: 19960301, end: 19960709

REACTIONS (5)
  - ARTERIAL OCCLUSIVE DISEASE [None]
  - RENAL DISORDER [None]
  - COMA [None]
  - CONSTIPATION [None]
  - INTESTINAL FUNCTIONAL DISORDER [None]
